FAERS Safety Report 6945597-2 (Version None)
Quarter: 2010Q3

REPORT INFORMATION
  Report Type: 
  Country: None (occurrence: None)
  Receive Date: 20100816
  Receipt Date: 20100803
  Transmission Date: 20110219
  Serious: Yes (Other)
  Sender: FDA-Public Use
  Company Number: ACO_01661_2010

PATIENT
  Sex: Female
  Weight: 62.1428 kg

DRUGS (13)
  1. AMPYRA [Suspect]
     Indication: GAIT DISTURBANCE
     Dosage: 10 MG BID ORAL
     Route: 048
     Dates: start: 20100727
  2. REBIF [Concomitant]
  3. MULTI-VITAMIN [Concomitant]
  4. ASPIRIN [Concomitant]
  5. VITAMIN D [Concomitant]
  6. CALCIUM [Concomitant]
  7. MENOSTAR [Concomitant]
  8. PROMETRIUM [Concomitant]
  9. CYMBALTA [Concomitant]
  10. FISH OIL [Concomitant]
  11. GLUCOSAMINE/CHONDROITIN [Concomitant]
  12. ALLERGY MEDICATION [Concomitant]
  13. ZYRTEC [Concomitant]

REACTIONS (4)
  - EXTRASYSTOLES [None]
  - HEART RATE IRREGULAR [None]
  - PAIN IN EXTREMITY [None]
  - STRESS [None]
